FAERS Safety Report 8244731-4 (Version None)
Quarter: 2012Q1

REPORT INFORMATION
  Report Type: 
  Country: None (occurrence: None)
  Receive Date: 20120329
  Receipt Date: 20110427
  Transmission Date: 20120608
  Serious: No
  Sender: FDA-Public Use
  Company Number: US-MYLANLABS-2011S1004211

PATIENT
  Age: 58 Year
  Sex: Male

DRUGS (9)
  1. FENTANYL-100 [Suspect]
     Indication: SCIATICA
     Dosage: CHANGED Q72H
     Route: 062
     Dates: start: 20110226, end: 20110228
  2. FENTANYL-100 [Suspect]
     Dosage: CHANGED Q 72H
     Route: 062
     Dates: start: 20110228
  3. OXYCODONE HCL [Concomitant]
  4. FENTANYL-100 [Suspect]
     Indication: BACK PAIN
     Dosage: CHANGED Q72H
     Route: 062
     Dates: start: 20110226, end: 20110228
  5. FENTANYL-100 [Suspect]
     Dosage: CHANGED Q 72H
     Route: 062
     Dates: start: 20110228
  6. FENTANYL-100 [Suspect]
     Dosage: CHANGED Q 72H
     Route: 062
     Dates: start: 20110228
  7. FENTANYL-100 [Suspect]
     Indication: NEUROPATHY PERIPHERAL
     Dosage: CHANGED Q72H
     Route: 062
     Dates: start: 20110226, end: 20110228
  8. FENTANYL-100 [Suspect]
     Indication: MUSCULOSKELETAL PAIN
     Dosage: CHANGED Q72H
     Route: 062
     Dates: start: 20110226, end: 20110228
  9. FENTANYL-100 [Suspect]
     Dosage: CHANGED Q 72H
     Route: 062
     Dates: start: 20110228

REACTIONS (2)
  - DRUG WITHDRAWAL SYNDROME [None]
  - FEELING ABNORMAL [None]
